FAERS Safety Report 15566712 (Version 1)
Quarter: 2018Q4

REPORT INFORMATION
  Report Type: Spontaneous
  Country: FR (occurrence: FR)
  Receive Date: 20181030
  Receipt Date: 20181030
  Transmission Date: 20190205
  Serious: Yes (Other)
  Sender: FDA-Public Use
  Company Number: FR-MYLANLABS-2018M1042670

PATIENT
  Age: 67 Year
  Sex: Male
  Weight: 68 kg

DRUGS (7)
  1. BACTRIM [Suspect]
     Active Substance: SULFAMETHOXAZOLE\TRIMETHOPRIM
     Indication: OPPORTUNISTIC INFECTION PROPHYLAXIS
     Dosage: 3 DF, QW
     Route: 048
     Dates: start: 20180129, end: 20180214
  2. TRUXIMA [Suspect]
     Active Substance: RITUXIMAB-ABBS
     Indication: NON-HODGKIN^S LYMPHOMA
     Dosage: 750 MG, CYCLE
     Route: 042
     Dates: start: 20180129, end: 20180129
  3. ORACILLINE                         /00001801/ [Suspect]
     Active Substance: PENICILLIN V
     Indication: ANTIBIOTIC PROPHYLAXIS
     Dosage: 2 MILLION IU, QD
     Route: 048
     Dates: start: 20180129, end: 20180214
  4. SPECIAFOLDINE [Suspect]
     Active Substance: FOLIC ACID
     Indication: PROPHYLAXIS
     Dosage: 30 MG, QW
     Route: 048
     Dates: start: 20180129, end: 20180214
  5. EPOETIN THETA [Concomitant]
     Active Substance: ERYTHROPOIETIN
     Indication: PRODUCT USED FOR UNKNOWN INDICATION
     Dosage: 30000 IU, QW
     Dates: start: 20180302
  6. LEVACT [Suspect]
     Active Substance: BENDAMUSTINE HYDROCHLORIDE
     Indication: NON-HODGKIN^S LYMPHOMA
     Dosage: 175 MG, CYCLE
     Route: 042
     Dates: start: 20180130, end: 20180131
  7. VALACICLOVIR [Suspect]
     Active Substance: VALACYCLOVIR HYDROCHLORIDE
     Indication: ANTIVIRAL PROPHYLAXIS
     Dosage: 1000 MG, QD
     Route: 048
     Dates: start: 20180129, end: 20180214

REACTIONS (2)
  - Acute kidney injury [Recovered/Resolved]
  - Incorrect dose administered [Unknown]

NARRATIVE: CASE EVENT DATE: 20180214
